FAERS Safety Report 6083068-9 (Version None)
Quarter: 2009Q1

REPORT INFORMATION
  Report Type: 
  Country: None (occurrence: None)
  Receive Date: 20090218
  Receipt Date: 20090203
  Transmission Date: 20090719
  Serious: Yes (Hospitalization, Other)
  Sender: FDA-Public Use
  Company Number: GB-JNJCH-2009003608

PATIENT

DRUGS (1)
  1. ASPIRIN [Suspect]
     Indication: ANTIPLATELET THERAPY
     Dosage: TEXT:75 MG UNSPECIFED
     Route: 065

REACTIONS (1)
  - RECTAL HAEMORRHAGE [None]
